FAERS Safety Report 7285050-2 (Version None)
Quarter: 2011Q1

REPORT INFORMATION
  Report Type: 
  Country: None (occurrence: None)
  Receive Date: 20110210
  Receipt Date: 20110126
  Transmission Date: 20110831
  Serious: Yes (Other)
  Sender: FDA-Public Use
  Company Number: DE-RANBAXY-2011RR-41581

PATIENT
  Age: 5 Year
  Sex: Male

DRUGS (1)
  1. CEFACLOR BASICS 250 MG TS [Suspect]
     Dosage: UNK
     Dates: start: 20110122

REACTIONS (1)
  - PYREXIA [None]
